FAERS Safety Report 5936919-X (Version None)
Quarter: 2008Q4

REPORT INFORMATION
  Report Type: 
  Country: None (occurrence: None)
  Receive Date: 20081031
  Receipt Date: 20081029
  Transmission Date: 20090506
  Serious: Yes (Death)
  Sender: FDA-Public Use
  Company Number: US-ABBOTT-08P-163-0484536-00

PATIENT
  Sex: Male

DRUGS (4)
  1. HUMIRA [Suspect]
     Indication: RHEUMATOID ARTHRITIS
     Route: 058
  2. UNKNOWN MEDICATION [Concomitant]
     Indication: CEREBROVASCULAR ACCIDENT
  3. UNKNOWN MEDICATION [Concomitant]
     Indication: DIABETES MELLITUS
  4. VICODIN [Concomitant]
     Indication: PAIN

REACTIONS (1)
  - MYOCARDIAL INFARCTION [None]
